FAERS Safety Report 8602681-5 (Version None)
Quarter: 2012Q3

REPORT INFORMATION
  Report Type: 
  Country: None (occurrence: None)
  Receive Date: 20120817
  Receipt Date: 20120807
  Transmission Date: 20120928
  Serious: Yes (Other)
  Sender: FDA-Public Use
  Company Number: NL-PFIZER INC-2012198492

PATIENT
  Age: 69 Year
  Sex: Male

DRUGS (7)
  1. ALUTARD SQ ^ALK^ [Concomitant]
     Dosage: ACCORDING TO SCHEME
     Dates: start: 20120308
  2. PERINDOPRIL ERBUMINE [Concomitant]
     Dosage: 4 MG, 1X/DAY
  3. SIMVASTATIN [Concomitant]
  4. ASCAL CARDIO [Concomitant]
     Dosage: 100 MG, 1X/DAY
     Route: 048
  5. RABEPRAZOLE SODIUM [Concomitant]
  6. METFORMIN [Concomitant]
     Dosage: 500 MG, 3X/DAY
  7. EPIPEN [Suspect]
     Indication: ALLERGY TO ARTHROPOD STING
     Dosage: 1 DF, 1X/DAY
     Dates: start: 20120720, end: 20120720

REACTIONS (3)
  - DEVICE FAILURE [None]
  - CIRCULATORY COLLAPSE [None]
  - UNDERDOSE [None]
